FAERS Safety Report 18352038 (Version 2)
Quarter: 2022Q4

REPORT INFORMATION
  Report Type: Report from Study
  Country: US (occurrence: US)
  Receive Date: 20201007
  Receipt Date: 20221201
  Transmission Date: 20230113
  Serious: Yes (Hospitalization)
  Sender: FDA-Public Use
  Company Number: US-AMRYT PHARMACEUTICALS DAC-AEGR004986

PATIENT
  Age: 26 Year
  Sex: Female
  Weight: 92 kg

DRUGS (27)
  1. METRELEPTIN [Suspect]
     Active Substance: METRELEPTIN
     Indication: Partial lipodystrophy
     Dosage: 5 MILLIGRAM (1ML), QD
     Route: 058
     Dates: start: 20190110, end: 20201028
  2. METRELEPTIN [Suspect]
     Active Substance: METRELEPTIN
     Dosage: 5 MILLIGRAM, BID
     Dates: start: 20201029
  3. ZOFRAN                             /00955301/ [Concomitant]
     Indication: Nausea
     Dosage: 4 MG, PRN
     Route: 060
     Dates: start: 20181104
  4. CREON [Concomitant]
     Active Substance: PANCRELIPASE AMYLASE\PANCRELIPASE LIPASE\PANCRELIPASE PROTEASE
     Indication: Pancreatitis relapsing
     Dosage: 6K-19K-30K, UNK
  5. FENOFIBRATE [Concomitant]
     Active Substance: FENOFIBRATE
     Indication: Hypertriglyceridaemia
     Dosage: 145 MG, UNK
     Route: 048
     Dates: start: 20200609
  6. MS CONTIN [Concomitant]
     Active Substance: MORPHINE SULFATE
     Indication: Pancreatitis relapsing
     Dosage: 60 MILLIGRAM, PRN
     Route: 048
     Dates: start: 20210525
  7. MS CONTIN [Concomitant]
     Active Substance: MORPHINE SULFATE
     Dosage: 4 MILLIGRAM, SINGLE
     Route: 042
     Dates: start: 20210920, end: 20210920
  8. MS CONTIN [Concomitant]
     Active Substance: MORPHINE SULFATE
     Dosage: 60 MILLIGRAM,  Q 8HRS
     Route: 048
     Dates: start: 20210922, end: 20210923
  9. ONDANSETRON [Concomitant]
     Active Substance: ONDANSETRON
     Indication: Pancreatitis relapsing
     Dosage: 4 MILLIGRAM, PRN
     Route: 048
     Dates: start: 20210923
  10. ONDANSETRON [Concomitant]
     Active Substance: ONDANSETRON
     Dosage: 4 MILLIGRAM, PRN Q 6 HRS, PRM
     Dates: start: 20210920, end: 20210923
  11. HEPARIN [Concomitant]
     Active Substance: HEPARIN SODIUM
     Indication: Pancreatitis
     Dosage: 5000 IU INTERNATIONAL UNIT(S), Q12HRS
     Dates: start: 20210922, end: 20210923
  12. DEXTROSE [Concomitant]
     Active Substance: DEXTROSE
     Indication: Pancreatitis
     Dosage: 115 DOSAGE FORM, ML/HR TID
     Route: 042
     Dates: start: 20210923, end: 20210923
  13. HYDROMORPHONE [Concomitant]
     Active Substance: HYDROMORPHONE
     Indication: Pancreatitis
     Dosage: 1 MILLIGRAM, PRN
     Route: 042
     Dates: start: 20210920, end: 20210920
  14. ATIVAN [Concomitant]
     Active Substance: LORAZEPAM
     Indication: Anxiety
     Dosage: 1 MILLIGRAM, SINGLE
     Route: 042
     Dates: start: 20210922, end: 20210922
  15. LACTATED RINGERS SOLUTION [Concomitant]
     Active Substance: CALCIUM CHLORIDE\POTASSIUM CHLORIDE\SODIUM CHLORIDE\SODIUM LACTATE
     Indication: Product used for unknown indication
     Route: 042
  16. MAGNESIUM SULFATE [Concomitant]
     Active Substance: MAGNESIUM SULFATE
     Indication: Pancreatitis
     Dosage: 1 GRAM,  Q 2HRS
     Route: 042
     Dates: start: 20210921, end: 20210923
  17. INSULIN NOS [Concomitant]
     Active Substance: INSULIN NOS
     Indication: Pancreatitis
     Dosage: 3 DOSAGE FORM, PRN U/HR
     Route: 042
     Dates: start: 20210923, end: 20210923
  18. HUMULIN N [Concomitant]
     Active Substance: INSULIN HUMAN
     Indication: Product used for unknown indication
     Dosage: UNK
  19. SODIUM CHLORIDE [Concomitant]
     Active Substance: SODIUM CHLORIDE
     Indication: Pancreatitis
     Dosage: 1000 MILLILITER, SINGLE
     Route: 042
     Dates: start: 20210920, end: 20210920
  20. FENTANYL [Concomitant]
     Active Substance: FENTANYL
     Indication: Product used for unknown indication
     Dosage: 50 MCG/HR PATCH TD72
  21. POTASSIUM CHLORIDE [Concomitant]
     Active Substance: POTASSIUM CHLORIDE
     Indication: Pancreatitis
     Dosage: 40 MILLIEQUIVALENT, SINGLE
     Route: 048
     Dates: start: 20210922, end: 20210922
  22. METFORMIN HYDROCHLORIDE [Concomitant]
     Active Substance: METFORMIN HYDROCHLORIDE
     Indication: Product used for unknown indication
     Dosage: 500 MG, UNK
  23. SPIRONOLACTONE [Concomitant]
     Active Substance: SPIRONOLACTONE
     Indication: Product used for unknown indication
     Dosage: 100 MG, UNK
  24. OMEGA 3                            /01333901/ [Concomitant]
     Indication: Product used for unknown indication
     Dosage: 1000 MG, UNK
  25. OXYCODONE HYDROCHLORIDE [Concomitant]
     Active Substance: OXYCODONE HYDROCHLORIDE
     Indication: Product used for unknown indication
     Dosage: 5 MG, UNK
  26. LIPITOR [Concomitant]
     Active Substance: ATORVASTATIN CALCIUM
     Indication: Product used for unknown indication
     Dosage: 40 MG, UNK
  27. PROMETHAZINE HYDROCHLORIDE [Concomitant]
     Active Substance: PROMETHAZINE HYDROCHLORIDE
     Indication: Product used for unknown indication
     Dosage: 12.5 MG, UNK

REACTIONS (7)
  - Blood electrolytes abnormal [Unknown]
  - Pancreatitis [Recovered/Resolved with Sequelae]
  - Pancreatitis [Recovered/Resolved with Sequelae]
  - Pancreatitis [Recovered/Resolved with Sequelae]
  - Pancreatitis [Recovered/Resolved with Sequelae]
  - Intentional dose omission [Unknown]
  - Off label use [Unknown]

NARRATIVE: CASE EVENT DATE: 20200522
